FAERS Safety Report 9264981 (Version 1)
Quarter: 2013Q2

REPORT INFORMATION
  Report Type: Spontaneous
  Country: US (occurrence: None)
  Receive Date: 20130430
  Receipt Date: 20130430
  Transmission Date: 20140414
  Serious: Yes (Other)
  Sender: FDA-Public Use
  Company Number: None

PATIENT
  Age: 76 Year
  Sex: Female
  Weight: 66.5 kg

DRUGS (2)
  1. VELCADE (BORTEZOMIB) [Suspect]
     Indication: PLASMA CELL MYELOMA
     Route: 058
     Dates: start: 201210, end: 201303
  2. ZOMETA [Concomitant]

REACTIONS (3)
  - Lymphoma [None]
  - Pericardial effusion [None]
  - Cardiac disorder [None]
